FAERS Safety Report 11264594 (Version 1)
Quarter: 2015Q3

REPORT INFORMATION
  Report Type: Spontaneous
  Country: GB (occurrence: GB)
  Receive Date: 20150713
  Receipt Date: 20150713
  Transmission Date: 20151125
  Serious: Yes (Hospitalization, Other)
  Sender: FDA-Public Use
  Company Number: GB-BAYER-2015-372334

PATIENT
  Age: 39 Year
  Sex: Female

DRUGS (1)
  1. NIFEDIPINE. [Suspect]
     Active Substance: NIFEDIPINE
     Indication: UTERINE CONTRACTIONS DURING PREGNANCY
     Dosage: UNK

REACTIONS (5)
  - Foetal hypokinesia [None]
  - Haemorrhage in pregnancy [None]
  - Premature delivery [None]
  - Product use issue [None]
  - Exposure during pregnancy [None]
